FAERS Safety Report 9183945 (Version 1)
Quarter: 2013Q1

REPORT INFORMATION
  Report Type: Spontaneous
  Country: US (occurrence: US)
  Receive Date: 20130322
  Receipt Date: 20130322
  Transmission Date: 20140127
  Serious: Yes (Other)
  Sender: FDA-Public Use
  Company Number: US-BRISTOL-MYERS SQUIBB COMPANY-16671893

PATIENT
  Age: 68 Year
  Sex: Female
  Weight: 87.53 kg

DRUGS (1)
  1. ERBITUX [Suspect]
     Indication: COLON CANCER
     Dosage: NO OF INF: 2

REACTIONS (1)
  - Rash pustular [Not Recovered/Not Resolved]
